FAERS Safety Report 6361603-0 (Version None)
Quarter: 2009Q3

REPORT INFORMATION
  Report Type: 
  Country: None (occurrence: None)
  Receive Date: 20090918
  Receipt Date: 20090909
  Transmission Date: 20100115
  Serious: No
  Sender: FDA-Public Use
  Company Number: PHEH2009US10708

PATIENT
  Sex: Female

DRUGS (9)
  1. TASIGNA [Suspect]
     Indication: CHRONIC MYELOID LEUKAEMIA
     Dosage: 400 MG, BID
     Dates: start: 20090601
  2. PAXIL [Concomitant]
  3. CALCIUM [Concomitant]
  4. ESTRADIOL [Concomitant]
  5. ACIPHEX [Concomitant]
  6. DETROL [Concomitant]
  7. ZOLPIDEM [Concomitant]
  8. EFFEXOR XR [Concomitant]
  9. PREVACID [Concomitant]

REACTIONS (1)
  - HEADACHE [None]
